FAERS Safety Report 5628583-4 (Version None)
Quarter: 2008Q1

REPORT INFORMATION
  Report Type: 
  Country: None (occurrence: None)
  Receive Date: 20080215
  Receipt Date: 20080205
  Transmission Date: 20080703
  Serious: Yes (Life-Threatening)
  Sender: FDA-Public Use
  Company Number: NL-PFIZER INC-2008011730

PATIENT
  Sex: Male
  Weight: 76 kg

DRUGS (3)
  1. ATORVASTATIN CALCIUM [Suspect]
     Indication: HYPERCHOLESTEROLAEMIA
     Dosage: FREQ:DAILY
     Route: 048
     Dates: start: 20050908, end: 20070315
  2. ZOCOR [Suspect]
     Indication: CORONARY ARTERY OCCLUSION
     Route: 048
  3. SELEKTINE [Suspect]
     Indication: HYPERCHOLESTEROLAEMIA
     Route: 048
     Dates: start: 20030901, end: 20070101

REACTIONS (7)
  - AMNESIA [None]
  - EXERCISE TOLERANCE DECREASED [None]
  - INFLAMMATION [None]
  - MUSCULAR WEAKNESS [None]
  - MYALGIA [None]
  - RASH [None]
  - SYNCOPE [None]
